FAERS Safety Report 5943562-5 (Version None)
Quarter: 2008Q4

REPORT INFORMATION
  Report Type: 
  Country: None (occurrence: None)
  Receive Date: 20081106
  Receipt Date: 20081027
  Transmission Date: 20090506
  Serious: Yes (Other)
  Sender: FDA-Public Use
  Company Number: CA-JNJCH-2008053388

PATIENT
  Sex: Female

DRUGS (1)
  1. LISTERINE WHITENING PRE-BRUSH RINSE [Suspect]
     Indication: DENTAL CARE
     Dosage: TEXT:UNSPECIFIED ONCE A DAY
     Route: 048
     Dates: start: 20081018, end: 20081020

REACTIONS (9)
  - APPLICATION SITE BURN [None]
  - APPLICATION SITE IRRITATION [None]
  - CHEILITIS [None]
  - GINGIVAL ERYTHEMA [None]
  - GINGIVAL PAIN [None]
  - LIP SWELLING [None]
  - STOMATITIS [None]
  - SWOLLEN TONGUE [None]
  - TONGUE DISORDER [None]
